FAERS Safety Report 8367787-7 (Version None)
Quarter: 2012Q2

REPORT INFORMATION
  Report Type: 
  Country: None (occurrence: None)
  Receive Date: 20120517
  Receipt Date: 20120507
  Transmission Date: 20120825
  Serious: Yes (Death, Hospitalization)
  Sender: FDA-Public Use
  Company Number: BR-ROCHE-803660

PATIENT
  Age: 51 Year
  Sex: Female
  Weight: 48 kg

DRUGS (6)
  1. PREDNISONE TAB [Concomitant]
     Indication: RHEUMATOID ARTHRITIS
     Route: 048
     Dates: start: 20091001
  2. GOLIMUMAB [Concomitant]
     Indication: RHEUMATOID ARTHRITIS
     Route: 058
     Dates: start: 20100930, end: 20110411
  3. ACTEMRA [Suspect]
     Indication: RHEUMATOID ARTHRITIS
     Dosage: ATE OF LAST DOSE PRIOR TO SAE: 15 SEP 2011
     Route: 058
     Dates: start: 20110816
  4. METHOTREXATE [Concomitant]
     Indication: RHEUMATOID ARTHRITIS
     Route: 048
     Dates: start: 20091001
  5. FOLIC ACID [Concomitant]
     Indication: TOXICITY TO VARIOUS AGENTS
     Route: 048
     Dates: start: 20091001
  6. ACETAMINOPHEN [Concomitant]
     Indication: RHEUMATOID ARTHRITIS
     Dosage: 40 DROPS
     Route: 048
     Dates: start: 20091001

REACTIONS (4)
  - PLEURAL EFFUSION [None]
  - LUNG INFECTION [None]
  - SEPTIC SHOCK [None]
  - LOWER RESPIRATORY TRACT INFECTION [None]
